FAERS Safety Report 13977327 (Version 1)
Quarter: 2017Q3

REPORT INFORMATION
  Report Type: Spontaneous
  Country: IT (occurrence: IT)
  Receive Date: 20170915
  Receipt Date: 20170915
  Transmission Date: 20171128
  Serious: Yes (Other)
  Sender: FDA-Public Use
  Company Number: PHHY2017IT134160

PATIENT
  Age: 56 Year
  Sex: Female

DRUGS (1)
  1. TEGRETOL [Suspect]
     Active Substance: CARBAMAZEPINE
     Indication: GENERALISED NON-CONVULSIVE EPILEPSY
     Dosage: 200 MG, QD
     Route: 048
     Dates: start: 20160903

REACTIONS (4)
  - Agitation [Recovering/Resolving]
  - Anticonvulsant drug level decreased [Unknown]
  - Depressed level of consciousness [Recovering/Resolving]
  - Headache [Recovering/Resolving]

NARRATIVE: CASE EVENT DATE: 20160910
